FAERS Safety Report 4673495-6 (Version None)
Quarter: 2005Q2

REPORT INFORMATION
  Report Type: 
  Country: None (occurrence: None)
  Receive Date: 20050525
  Receipt Date: 20030811
  Transmission Date: 20051028
  Serious: Yes (Hospitalization, Other)
  Sender: FDA-Public Use
  Company Number: GB-SANOFI-SYNTHELABO-D01200301043

PATIENT
  Sex: Male

DRUGS (18)
  1. SR57746 OR PLACEBO [Suspect]
     Route: 048
     Dates: start: 20030217, end: 20030706
  2. OXALIPLATIN [Suspect]
     Route: 042
     Dates: start: 20030616, end: 20030616
  3. FLUOROURACIL [Suspect]
     Dosage: 400 MG/M2 AS IV BOLUS THEN 600 MG/M2 AS 22 HOURS CONTINUOUS INFUSION D1-D2 Q2W
     Route: 042
     Dates: start: 20030616, end: 20030617
  4. LEUCOVORIN CALCIUM [Suspect]
     Dosage: 200 MG/M2 AS 2 HOURS INFUSION ON D1-D2 Q2W
     Route: 042
     Dates: start: 20030616, end: 20030617
  5. MERBENTYL [Concomitant]
     Dosage: UNK
     Route: 065
     Dates: start: 20030116
  6. MAXALON [Concomitant]
     Dosage: UNK
     Route: 065
     Dates: start: 20030214
  7. OMEPRAZOLE [Concomitant]
     Dosage: UNK
     Route: 065
     Dates: start: 20021213
  8. CODANTHRUSATE [Concomitant]
     Dosage: UNK
     Route: 065
     Dates: start: 20030201
  9. DICLOFENAC SODIUM [Concomitant]
     Dosage: UNK
     Route: 065
     Dates: start: 20030127
  10. MORPHINE SULFATE [Concomitant]
     Dosage: UNK
     Route: 065
     Dates: start: 20030204
  11. SEVREDOL [Concomitant]
     Dosage: UNK
     Route: 065
     Dates: start: 20030204
  12. OXYGEN (HOME) [Concomitant]
     Dosage: UNK
     Route: 065
     Dates: start: 20030310
  13. VOLTAROL [Concomitant]
     Dosage: UNK
     Route: 065
     Dates: start: 20030418
  14. GRANISETRON [Concomitant]
     Dosage: UNK
     Route: 065
     Dates: start: 20030707, end: 20030707
  15. DEXAMETHASONE [Concomitant]
     Dosage: UNK
     Route: 065
     Dates: start: 20030707, end: 20030707
  16. DOMPERIDONE [Concomitant]
     Dosage: UNK
     Route: 065
     Dates: start: 20030616, end: 20030617
  17. KYTRIL [Concomitant]
     Dosage: UNK
     Route: 065
     Dates: start: 20030617, end: 20030618
  18. PIRITON [Concomitant]
     Dosage: UNK
     Route: 065
     Dates: start: 20030618, end: 20030624

REACTIONS (2)
  - CHEST PAIN [None]
  - RASH [None]
